FAERS Safety Report 8972062 (Version 1)
Quarter: 2012Q4

REPORT INFORMATION
  Report Type: 
  Country: GB (occurrence: GB)
  Receive Date: 20121218
  Receipt Date: 20121218
  Transmission Date: 20130627
  Serious: Yes (Hospitalization)
  Sender: FDA-Public Use
  Company Number: GB-WATSON-2012-22096

PATIENT
  Age: 17 Year
  Sex: Female

DRUGS (2)
  1. CITALOPRAM HYDROBROMIDE (UNKNOWN) [Suspect]
     Indication: PRODUCT USED FOR UNKNOWN INDICATION
     Dosage: 20 mg, daily
     Route: 048
  2. CITALOPRAM HYDROBROMIDE (UNKNOWN) [Suspect]
     Dosage: Overdose: 21 x 20 mg tablets (420 mg)
     Route: 048
     Dates: start: 20121113, end: 20121114

REACTIONS (2)
  - Intentional overdose [Recovered/Resolved]
  - Off label use [Unknown]
